FAERS Safety Report 19918711 (Version 1)
Quarter: 2021Q4

REPORT INFORMATION
  Report Type: Spontaneous
  Country: US (occurrence: US)
  Receive Date: 20211005
  Receipt Date: 20211005
  Transmission Date: 20220303
  Serious: No
  Sender: FDA-Public Use
  Company Number: US-AMGEN-USASP2021151933

PATIENT
  Sex: Male

DRUGS (4)
  1. OTEZLA [Suspect]
     Active Substance: APREMILAST
     Indication: Body mass index
     Dosage: 30 MILLIGRAM, BID (APPROX. 12 HOURS APRAT)
     Route: 048
  2. OTEZLA [Suspect]
     Active Substance: APREMILAST
     Indication: Off label use
     Dosage: 30 MILLIGRAM, QD
     Route: 048
  3. NAPROSYN [Concomitant]
     Active Substance: NAPROXEN
  4. CLOBEX [CLOBETASOL PROPIONATE] [Concomitant]

REACTIONS (2)
  - Adverse drug reaction [Not Recovered/Not Resolved]
  - Off label use [Unknown]
